FAERS Safety Report 21259265 (Version 1)
Quarter: 2022Q3

REPORT INFORMATION
  Report Type: Other
  Country: RU (occurrence: RU)
  Receive Date: 20220826
  Receipt Date: 20220826
  Transmission Date: 20221027
  Serious: Yes (Life-Threatening, Other)
  Sender: FDA-Public Use
  Company Number: RU-002147023-NVSC2022RU176855

PATIENT
  Age: 72 Year
  Sex: Female

DRUGS (1)
  1. LUCENTIS [Suspect]
     Active Substance: RANIBIZUMAB
     Indication: Diabetic retinal oedema
     Dosage: UNK
     Route: 065

REACTIONS (2)
  - Feeling abnormal [Recovered/Resolved]
  - Tachycardia [Recovered/Resolved]
